FAERS Safety Report 12874094 (Version 1)
Quarter: 2016Q4

REPORT INFORMATION
  Report Type: Spontaneous
  Country: US (occurrence: US)
  Receive Date: 20161021
  Receipt Date: 20161021
  Transmission Date: 20170207
  Serious: No
  Sender: FDA-Public Use
  Company Number: US-PFIZER INC-3085159

PATIENT
  Age: 48 Year
  Sex: Male

DRUGS (1)
  1. METRONIDAZOLE. [Suspect]
     Active Substance: METRONIDAZOLE
     Indication: CLOSTRIDIUM DIFFICILE INFECTION
     Dosage: 500 MG, FREQ: 1 HOUR; INTERVAL: 8
     Route: 042
     Dates: start: 20151009, end: 20151112

REACTIONS (2)
  - Poor quality drug administered [Unknown]
  - Product contamination physical [Unknown]
